FAERS Safety Report 6569425-2 (Version None)
Quarter: 2010Q1

REPORT INFORMATION
  Report Type: 
  Country: None (occurrence: None)
  Receive Date: 20100202
  Receipt Date: 20100202
  Transmission Date: 20100710
  Serious: No
  Sender: FDA-Public Use
  Company Number: None

PATIENT
  Age: 55 Year
  Sex: Male
  Weight: 63.5036 kg

DRUGS (1)
  1. SIMVASTATIN [Suspect]
     Indication: BLOOD CHOLESTEROL INCREASED
     Dosage: 1 DOSE DAILY
     Dates: start: 20090804, end: 20090901

REACTIONS (9)
  - ARTHRALGIA [None]
  - ASTHENIA [None]
  - COUGH [None]
  - FATIGUE [None]
  - FEELING ABNORMAL [None]
  - GROIN PAIN [None]
  - PAIN [None]
  - PAIN IN EXTREMITY [None]
  - SNEEZING [None]
